FAERS Safety Report 7525759-6 (Version None)
Quarter: 2011Q2

REPORT INFORMATION
  Report Type: 
  Country: None (occurrence: None)
  Receive Date: 20110606
  Receipt Date: 20110523
  Transmission Date: 20111010
  Serious: Yes (Hospitalization, Congenital Anomaly)
  Sender: FDA-Public Use
  Company Number: PHHY2011AU45092

PATIENT
  Sex: Male

DRUGS (2)
  1. OLANZAPINE [Concomitant]
  2. CLOZAPINE [Suspect]
     Dates: start: 20061108

REACTIONS (3)
  - RETROGRADE EJACULATION [None]
  - SCHIZOPHRENIA [None]
  - SEXUAL DYSFUNCTION [None]
